FAERS Safety Report 7596039-8 (Version None)
Quarter: 2011Q3

REPORT INFORMATION
  Report Type: 
  Country: None (occurrence: None)
  Receive Date: 20110707
  Receipt Date: 20110630
  Transmission Date: 20111222
  Serious: Yes (Disabling, Other)
  Sender: FDA-Public Use
  Company Number: PHHO2007US18614

PATIENT
  Sex: Female
  Weight: 57 kg

DRUGS (5)
  1. SYNTHROID [Concomitant]
  2. GILENYA [Suspect]
     Indication: MULTIPLE SCLEROSIS
     Dosage: 0.5 MG, QD
     Dates: start: 20070716, end: 20071105
  3. PROZAC [Concomitant]
  4. MURINE [Concomitant]
  5. ATIVAN [Concomitant]

REACTIONS (7)
  - MACULAR HOLE [None]
  - OPTIC NEURITIS [None]
  - CYST RUPTURE [None]
  - VISION BLURRED [None]
  - MACULAR OEDEMA [None]
  - RETINAL CYST [None]
  - MACULOPATHY [None]
